FAERS Safety Report 24034711 (Version 3)
Quarter: 2024Q3

REPORT INFORMATION
  Report Type: Spontaneous
  Country: US (occurrence: US)
  Receive Date: 20240701
  Receipt Date: 20240919
  Transmission Date: 20241016
  Serious: Yes (Other)
  Sender: BAUSCH AND LOMB
  Company Number: US-BAUSCHBL-2024BNL028576

PATIENT
  Age: 78 Year
  Sex: Female
  Weight: 54 kg

DRUGS (43)
  1. MINERALS\VITAMINS [Suspect]
     Active Substance: MINERALS\VITAMINS
     Indication: Product used for unknown indication
     Dosage: PAST 10 YEARS
     Route: 048
     Dates: start: 2014
  2. MINERALS\VITAMINS [Suspect]
     Active Substance: MINERALS\VITAMINS
     Indication: Macular degeneration
     Route: 065
     Dates: end: 2023
  3. BLINK TEARS [Suspect]
     Active Substance: POLYETHYLENE GLYCOL 400
     Indication: Product used for unknown indication
     Dosage: 1 GTT PRN OU.
     Route: 047
  4. ASPIRIN [Concomitant]
     Active Substance: ASPIRIN
     Indication: Product used for unknown indication
     Dosage: TAKE 81 MG BY MOUTH DAILY
     Route: 048
     Dates: start: 20160716
  5. CLOPIDOGREL BISULFATE [Concomitant]
     Active Substance: CLOPIDOGREL BISULFATE
     Indication: Product used for unknown indication
     Route: 048
  6. COENZYME Q10 [Concomitant]
     Active Substance: DIETARY SUPPLEMENT\UBIDECARENONE
     Indication: Product used for unknown indication
     Route: 048
     Dates: start: 20141211
  7. DULOXETINE HYDROCHLORIDE [Concomitant]
     Active Substance: DULOXETINE HYDROCHLORIDE
     Indication: Product used for unknown indication
     Dosage: DELAYED RELEASE PARTICLES
     Route: 048
  8. FISH OIL [Concomitant]
     Active Substance: FISH OIL
     Indication: Product used for unknown indication
     Route: 048
  9. LECITHIN [Concomitant]
     Active Substance: LECITHIN
     Indication: Product used for unknown indication
     Dosage: 1 CAPSULE IN THE MORNING AND AT BEDTIME
     Route: 048
     Dates: start: 20231214, end: 20231214
  10. LEVOTHYROXINE SODIUM [Concomitant]
     Active Substance: LEVOTHYROXINE SODIUM
     Indication: Product used for unknown indication
     Dosage: TAKE 1 TABLET BY MOUTH IN THE MORNING ON AN EMPTY STOMACH FOR 6 DAYS
     Route: 048
  11. LEVOTHYROXINE SODIUM [Concomitant]
     Active Substance: LEVOTHYROXINE SODIUM
     Dosage: THEN 2 TABLETS ON THE 7TH DAY EACH WEEK
     Route: 048
  12. ZOCOR [Concomitant]
     Active Substance: SIMVASTATIN
     Indication: Product used for unknown indication
     Dosage: AT BEDTIME
     Route: 048
  13. VALSARTAN [Concomitant]
     Active Substance: VALSARTAN
     Indication: Product used for unknown indication
     Dosage: IN THE MORNING
     Route: 048
     Dates: start: 20230330, end: 20240123
  14. VALSARTAN [Concomitant]
     Active Substance: VALSARTAN
     Dosage: IN THE MORNING
     Route: 048
     Dates: start: 20240229, end: 20240305
  15. VALSARTAN [Concomitant]
     Active Substance: VALSARTAN
     Dosage: IN THE MORNING
     Route: 048
     Dates: start: 20240305, end: 20240520
  16. VALSARTAN AND HYDROCHLOROTHIAZIDE [Concomitant]
     Active Substance: HYDROCHLOROTHIAZIDE\VALSARTAN
     Indication: Product used for unknown indication
     Dosage: AT BEDTIME, 160 MG/12.5 MG
     Route: 048
     Dates: start: 20230124, end: 20230124
  17. VALSARTAN AND HYDROCHLOROTHIAZIDE [Concomitant]
     Active Substance: HYDROCHLOROTHIAZIDE\VALSARTAN
     Dosage: EVERY DAY, 160 MG/25 MG
     Route: 048
  18. VITAMIN B12 [Concomitant]
     Active Substance: CYANOCOBALAMIN
     Indication: Product used for unknown indication
     Route: 048
  19. VITAMIN D3 [Concomitant]
     Active Substance: CHOLECALCIFEROL
     Indication: Product used for unknown indication
     Route: 048
  20. VITAMIN D3 [Concomitant]
     Active Substance: CHOLECALCIFEROL
     Route: 048
  21. VITAMIN E [Concomitant]
     Active Substance: .ALPHA.-TOCOPHEROL
     Indication: Product used for unknown indication
     Dosage: 400 UNIT
     Route: 048
     Dates: start: 20141211
  22. VITAMIN B COMPLEX [Concomitant]
     Active Substance: CYANOCOBALAMIN\DEXPANTHENOL\NIACINAMIDE\PYRIDOXINE HYDROCHLORIDE\RIBOFLAVIN 5^-PHOSPHATE SODIUM\THIA
     Indication: Product used for unknown indication
     Dosage: 1.7 MG?20 MG?2 MG?1.2 MG/ML SUBLINGUAL LIQUID
     Route: 060
  23. VITAMIN B COMPLEX [Concomitant]
     Active Substance: CYANOCOBALAMIN\DEXPANTHENOL\NIACINAMIDE\PYRIDOXINE HYDROCHLORIDE\RIBOFLAVIN 5^-PHOSPHATE SODIUM\THIA
     Dosage: 1 TABLET IN THE MORNING
     Route: 048
     Dates: start: 20151015
  24. LOSARTAN [Concomitant]
     Active Substance: LOSARTAN\LOSARTAN POTASSIUM
     Indication: Product used for unknown indication
     Route: 065
     Dates: end: 20240229
  25. ALPHA LIPOIC ACID [Concomitant]
     Active Substance: .ALPHA.-LIPOIC ACID
     Indication: Product used for unknown indication
  26. COPPER [Concomitant]
     Active Substance: COPPER
     Indication: Product used for unknown indication
  27. COPPER [Concomitant]
     Active Substance: COPPER
  28. CUPRIC SULFATE [Concomitant]
     Active Substance: CUPRIC SULFATE
     Indication: Supplementation therapy
     Route: 048
  29. CUPRIC SULFATE [Concomitant]
     Active Substance: CUPRIC SULFATE
     Dosage: 2ND WEEK
     Route: 048
  30. CUPRIC SULFATE [Concomitant]
     Active Substance: CUPRIC SULFATE
     Dosage: 3RD WEEK
     Route: 048
  31. CUPRIC SULFATE [Concomitant]
     Active Substance: CUPRIC SULFATE
     Dosage: THEREAFTER
     Route: 048
  32. AMLODIPINE [Concomitant]
     Active Substance: AMLODIPINE BESYLATE
     Indication: Product used for unknown indication
     Route: 048
  33. AMLODIPINE [Concomitant]
     Active Substance: AMLODIPINE BESYLATE
     Route: 048
     Dates: start: 20220316, end: 20230330
  34. LEVOTHYROXINE [Concomitant]
     Active Substance: LEVOTHYROXINE\LEVOTHYROXINE SODIUM
     Indication: Product used for unknown indication
     Dosage: BEFORE BREAKFAST
     Route: 048
     Dates: start: 20150130
  35. COENZYME Q10 [Concomitant]
     Active Substance: DIETARY SUPPLEMENT\UBIDECARENONE
     Indication: Product used for unknown indication
     Route: 048
     Dates: start: 20141211
  36. NEURONTIN [Concomitant]
     Active Substance: GABAPENTIN
     Indication: Product used for unknown indication
     Route: 048
     Dates: start: 20230712
  37. HYDROCHLOROTHIAZIDE [Concomitant]
     Active Substance: HYDROCHLOROTHIAZIDE
     Indication: Product used for unknown indication
     Route: 048
  38. SIMVASTATIN [Concomitant]
     Active Substance: SIMVASTATIN
     Indication: Product used for unknown indication
     Route: 048
     Dates: start: 20240503
  39. SIMVASTATIN [Concomitant]
     Active Substance: SIMVASTATIN
     Dosage: BY MOUTH AT BEDTIME
     Route: 048
     Dates: start: 20230511, end: 20240305
  40. SIMVASTATIN [Concomitant]
     Active Substance: SIMVASTATIN
     Dosage: BY MOUTH AT BEDTIME
     Route: 048
     Dates: start: 20221104, end: 20230511
  41. FISH OIL OMEGA 3S [Concomitant]
     Indication: Product used for unknown indication
     Route: 048
  42. COPPER GLUCONATE [Concomitant]
     Active Substance: COPPER GLUCONATE
     Indication: Product used for unknown indication
     Route: 048
  43. ACETAMINOPHEN [Concomitant]
     Active Substance: ACETAMINOPHEN
     Indication: Product used for unknown indication
     Route: 048
     Dates: start: 20220603, end: 20230330

REACTIONS (15)
  - Myelopathy [Recovered/Resolved]
  - Polyneuropathy [Unknown]
  - Cerebral infarction [Unknown]
  - Copper deficiency [Recovered/Resolved]
  - Cerebellar ataxia [Unknown]
  - Hypoaesthesia [Unknown]
  - Balance disorder [Unknown]
  - Gait disturbance [Unknown]
  - Paraesthesia [Unknown]
  - Back pain [Unknown]
  - Constipation [Unknown]
  - Mouth ulceration [Unknown]
  - Dysphagia [Unknown]
  - Headache [Unknown]
  - Arthralgia [Unknown]

NARRATIVE: CASE EVENT DATE: 20210101
